FAERS Safety Report 15852008 (Version 1)
Quarter: 2019Q1

REPORT INFORMATION
  Report Type: Spontaneous
  Country: DK (occurrence: DK)
  Receive Date: 20190122
  Receipt Date: 20190122
  Transmission Date: 20190417
  Serious: No
  Sender: FDA-Public Use
  Company Number: DK-ALKEM LABORATORIES LIMITED-DK-ALKEM-2018-03540

PATIENT
  Sex: Female

DRUGS (1)
  1. METHADONE HYDROCHLORIDE. [Suspect]
     Active Substance: METHADONE HYDROCHLORIDE
     Indication: PRODUCT USED FOR UNKNOWN INDICATION
     Dosage: UNK
     Route: 065

REACTIONS (2)
  - Toxicity to various agents [Unknown]
  - Exposure during pregnancy [Unknown]
